FAERS Safety Report 6679194-3 (Version None)
Quarter: 2010Q2

REPORT INFORMATION
  Report Type: 
  Country: None (occurrence: None)
  Receive Date: 20100413
  Receipt Date: 20100402
  Transmission Date: 20101027
  Serious: Yes (Death, Other)
  Sender: FDA-Public Use
  Company Number: HQ1215306MAR2002

PATIENT
  Sex: Female

DRUGS (1)
  1. PREMPRO [Suspect]
     Dosage: UNSPECIFIED
     Route: 048
     Dates: start: 19980101

REACTIONS (19)
  - ABDOMINAL TENDERNESS [None]
  - ALOPECIA [None]
  - BLOOD GLUCOSE FLUCTUATION [None]
  - BREAST CANCER FEMALE [None]
  - BREAST ENLARGEMENT [None]
  - DEPRESSION [None]
  - DIABETES MELLITUS [None]
  - DIZZINESS [None]
  - GALLBLADDER DISORDER [None]
  - METRORRHAGIA [None]
  - MIGRAINE [None]
  - MUSCLE SPASMS [None]
  - NAUSEA [None]
  - SKIN CANCER [None]
  - TENDERNESS [None]
  - UTERINE CANCER [None]
  - VOMITING [None]
  - VULVOVAGINAL CANDIDIASIS [None]
  - WEIGHT FLUCTUATION [None]
